FAERS Safety Report 9364552 (Version 1)
Quarter: 2013Q2

REPORT INFORMATION
  Report Type: Spontaneous
  Country: CH (occurrence: CH)
  Receive Date: 20130624
  Receipt Date: 20130624
  Transmission Date: 20140414
  Serious: Yes (Other)
  Sender: FDA-Public Use
  Company Number: CH-PFIZER INC-2013115352

PATIENT
  Age: 49 Year
  Sex: Male
  Weight: 62 kg

DRUGS (4)
  1. CHAMPIX [Suspect]
     Indication: SMOKING CESSATION THERAPY
     Dosage: 1 MG, 2X/DAY
     Route: 048
     Dates: start: 201301
  2. CHAMPIX [Suspect]
     Dosage: 0.5 MG, 2X/DAY
     Route: 048
     Dates: end: 20130318
  3. ATORVASTATIN CALCIUM [Concomitant]
     Dosage: 40 MG, UNK
  4. ASPIRIN CARDIO [Concomitant]
     Dosage: 100 MG, 1X/DAY

REACTIONS (4)
  - Gait disturbance [Recovered/Resolved]
  - Disturbance in attention [Recovered/Resolved]
  - Headache [Recovered/Resolved]
  - Memory impairment [Recovered/Resolved]
